FAERS Safety Report 19950778 (Version 1)
Quarter: 2021Q4

REPORT INFORMATION
  Report Type: Report from Study
  Country: BG (occurrence: BG)
  Receive Date: 20211013
  Receipt Date: 20211013
  Transmission Date: 20220303
  Serious: Yes (Hospitalization)
  Sender: FDA-Public Use
  Company Number: BG-CELLTRION HEALTHCARE HUNGARY KFT-2021BG005761

PATIENT

DRUGS (8)
  1. TRASTUZUMAB [Suspect]
     Active Substance: TRASTUZUMAB
     Indication: Breast cancer
     Dosage: 1350 MILLIGRAM, QW (450 MG; MOST RECENT DOSE PRIOR TO THE EVENT: 27/NOV/2019)
     Route: 042
     Dates: start: 20191031, end: 20191031
  2. ZOLEDRONIC ACID [Suspect]
     Active Substance: ZOLEDRONIC ACID
     Indication: Breast cancer
     Dosage: 4 MILLIGRAM (4 MG, EVERY 4 WEEK)
     Route: 042
     Dates: start: 20191114
  3. DOCETAXEL [Suspect]
     Active Substance: DOCETAXEL
     Indication: Breast cancer
     Dosage: 75 MILLIGRAM (75 MG, EVERY 3 WEEKS)
     Route: 042
     Dates: start: 20191031
  4. ENALAPRIL [Concomitant]
     Active Substance: ENALAPRIL
     Dosage: UNK (ONGOING = CHECKED)
     Dates: start: 20091215
  5. FILGRASTIM [Concomitant]
     Active Substance: FILGRASTIM
     Indication: Leukopenia
     Dosage: UNK (ONGOING = NOT CHECKED)
     Dates: start: 20200709, end: 20200709
  6. ERYTHROPOIETIN [Concomitant]
     Active Substance: ERYTHROPOIETIN
     Indication: Anaemia
     Dosage: UNK (ONGOING = NOT CHECKED)
     Dates: start: 20200710, end: 20200710
  7. TRAMADOL [Concomitant]
     Active Substance: TRAMADOL
     Dosage: UNK (ONGOING = CHECKED)
     Dates: start: 20200824
  8. DIPYRONE [Concomitant]
     Active Substance: DIPYRONE
     Dosage: UNK (ONGOING = NOT CHECKED)
     Dates: start: 20191015, end: 20200824

REACTIONS (2)
  - Anaemia [Recovered/Resolved with Sequelae]
  - Underdose [Unknown]

NARRATIVE: CASE EVENT DATE: 20200807
